FAERS Safety Report 12777570 (Version 1)
Quarter: 2016Q3

REPORT INFORMATION
  Report Type: Spontaneous
  Country: US (occurrence: US)
  Receive Date: 20160924
  Receipt Date: 20160924
  Transmission Date: 20161109
  Serious: Yes (Death, Other)
  Sender: FDA-Public Use
  Company Number: PHHY2016US128622

PATIENT
  Age: 24 Year
  Sex: Male

DRUGS (6)
  1. CLOZAPINE. [Suspect]
     Active Substance: CLOZAPINE
     Indication: SOMATIC DELUSION
     Dosage: 300 MG, QHS
     Route: 065
  2. MODAFINIL. [Suspect]
     Active Substance: MODAFINIL
     Indication: SOMATIC DELUSION
     Dosage: 200 MG, QD
     Route: 065
  3. MODAFINIL. [Suspect]
     Active Substance: MODAFINIL
     Indication: SUICIDAL IDEATION
  4. CLOZAPINE. [Suspect]
     Active Substance: CLOZAPINE
     Indication: SUICIDAL IDEATION
  5. CITALOPRAM [Suspect]
     Active Substance: CITALOPRAM HYDROBROMIDE
     Indication: SUICIDAL IDEATION
  6. CITALOPRAM [Suspect]
     Active Substance: CITALOPRAM HYDROBROMIDE
     Indication: SOMATIC DELUSION
     Dosage: 40 MG, QD
     Route: 065

REACTIONS (4)
  - Sedation [Unknown]
  - Therapy non-responder [Unknown]
  - Completed suicide [Fatal]
  - Rebound effect [Unknown]
